FAERS Safety Report 6048407-3 (Version None)
Quarter: 2009Q1

REPORT INFORMATION
  Report Type: 
  Country: None (occurrence: None)
  Receive Date: 20090123
  Receipt Date: 20090113
  Transmission Date: 20090719
  Serious: Yes (Other)
  Sender: FDA-Public Use
  Company Number: A0761377A

PATIENT
  Age: 21 Year
  Sex: Female

DRUGS (3)
  1. ZIDOVUDINE [Suspect]
     Indication: HIV INFECTION
     Dosage: 600MG PER DAY
     Route: 048
     Dates: start: 20080723
  2. EMTRIVA [Suspect]
     Indication: HIV INFECTION
     Dosage: 200MG PER DAY
     Route: 048
     Dates: start: 20080723
  3. KALETRA [Suspect]
     Indication: HIV INFECTION
     Route: 048
     Dates: start: 20080723

REACTIONS (4)
  - DRUG EXPOSURE DURING PREGNANCY [None]
  - INTRA-UTERINE DEATH [None]
  - STILLBIRTH [None]
  - UTERINE HAEMATOMA [None]
